FAERS Safety Report 5593461-6 (Version None)
Quarter: 2008Q1

REPORT INFORMATION
  Report Type: 
  Country: None (occurrence: None)
  Receive Date: 20080116
  Receipt Date: 20080111
  Transmission Date: 20080703
  Serious: Yes (Death, Life-Threatening, Hospitalization)
  Sender: FDA-Public Use
  Company Number: JP-BRISTOL-MYERS SQUIBB COMPANY-13868583

PATIENT
  Age: 72 Year
  Sex: Male

DRUGS (16)
  1. BRIPLATIN [Suspect]
     Indication: PLEURAL MESOTHELIOMA MALIGNANT
     Dosage: 75 MG TAKEN ON 04-APR-2007 TO 04-APR-2007
     Route: 041
     Dates: start: 20070205, end: 20070302
  2. ALIMTA [Suspect]
     Indication: PLEURAL MESOTHELIOMA MALIGNANT
     Route: 042
     Dates: start: 20070205, end: 20070404
  3. PANVITAN [Concomitant]
     Route: 048
     Dates: start: 20070126, end: 20070419
  4. CYANOCOBALAMIN [Concomitant]
     Dosage: ALSO TAKEN ON 30-MAR-2007, INTRAMUSCULAR.
     Route: 030
     Dates: start: 20070126, end: 20070129
  5. MYSLEE [Concomitant]
     Route: 048
     Dates: end: 20070308
  6. LOXONIN [Concomitant]
     Route: 048
     Dates: end: 20070215
  7. MEDICON [Concomitant]
     Route: 048
     Dates: end: 20070315
  8. CYTOTEC [Concomitant]
     Route: 048
     Dates: end: 20070419
  9. URSO 250 [Concomitant]
     Route: 048
     Dates: end: 20070301
  10. CALONAL [Concomitant]
     Route: 048
     Dates: end: 20070420
  11. NAPROXEN [Concomitant]
     Route: 048
     Dates: start: 20070319, end: 20070419
  12. OXYCONTIN [Concomitant]
     Route: 048
     Dates: start: 20070329, end: 20070418
  13. DAI-KENCHU-TO [Concomitant]
     Route: 048
     Dates: start: 20070331, end: 20070401
  14. DECADRON [Concomitant]
     Route: 041
     Dates: start: 20070204, end: 20070406
  15. NASEA [Concomitant]
     Route: 041
     Dates: start: 20070205, end: 20070407
  16. SERENACE [Concomitant]
     Route: 048
     Dates: start: 20070329, end: 20070416

REACTIONS (9)
  - ANAEMIA [None]
  - C-REACTIVE PROTEIN INCREASED [None]
  - HEADACHE [None]
  - HEPATIC FUNCTION ABNORMAL [None]
  - HYPOALBUMINAEMIA [None]
  - MALIGNANT NEOPLASM PROGRESSION [None]
  - NAUSEA [None]
  - PLATELET COUNT DECREASED [None]
  - RENAL IMPAIRMENT [None]
